FAERS Safety Report 6479890-7 (Version None)
Quarter: 2009Q4

REPORT INFORMATION
  Report Type: 
  Country: None (occurrence: None)
  Receive Date: 20091208
  Receipt Date: 20091103
  Transmission Date: 20100525
  Serious: Yes (Other)
  Sender: FDA-Public Use
  Company Number: US-SANOFI-AVENTIS-200918387US

PATIENT
  Age: 78 Year
  Sex: Female

DRUGS (2)
  1. OPTICLICK [Suspect]
     Dates: start: 20050101
  2. INSULIN GLARGINE [Suspect]
     Dosage: DOSE:44 UNIT(S)
     Route: 058
     Dates: start: 20050101

REACTIONS (1)
  - HYPOGLYCAEMIA [None]
